FAERS Safety Report 18323970 (Version 1)
Quarter: 2020Q3

REPORT INFORMATION
  Report Type: Report from Study
  Country: None (occurrence: US)
  Receive Date: 20200929
  Receipt Date: 20200929
  Transmission Date: 20201103
  Serious: Yes (Other)
  Sender: FDA-Public Use
  Company Number: US-ABBVIE-20K-163-3347378-00

PATIENT
  Age: 44 Year
  Weight: 99.88 kg

DRUGS (24)
  1. PAXIL [Concomitant]
     Active Substance: PAROXETINE HYDROCHLORIDE
     Indication: DEPRESSION
     Dosage: PM DAILY
  2. METHOTREXATE. [Concomitant]
     Active Substance: METHOTREXATE
     Indication: RHEUMATOID ARTHRITIS
  3. PREDNISONE. [Concomitant]
     Active Substance: PREDNISONE
     Indication: OSTEOARTHRITIS
  4. SOLGAR GENTLE IRON [Concomitant]
     Indication: BLOOD IRON DECREASED
     Dosage: WITH DINNER DAILY
  5. AVAPRO [Concomitant]
     Active Substance: IRBESARTAN
     Indication: HYPERTENSION
     Dosage: AM DAILY
  6. METHOTREXATE. [Concomitant]
     Active Substance: METHOTREXATE
     Indication: ARTHRITIS
     Dosage: EVERY MONDAY PM
  7. RIBOFLAVIN PHOSPHATE [Concomitant]
     Active Substance: FLAVIN MONONUCLEOTIDE
     Indication: PRODUCT USED FOR UNKNOWN INDICATION
     Dosage: AM DAILY
  8. PHOSPHATIDYL SERINE [Concomitant]
     Active Substance: PHOSPHATIDYL SERINE
     Indication: AMINO ACID LEVEL INCREASED
     Dosage: AM AND PM DAILY
  9. HUMIRA [Suspect]
     Active Substance: ADALIMUMAB
     Indication: RHEUMATOID ARTHRITIS
     Route: 058
  10. KLOR?CON M10 [Concomitant]
     Active Substance: POTASSIUM CHLORIDE
     Indication: BLOOD POTASSIUM DECREASED
     Dosage: ER AM DAILY
  11. METFORMIN [Concomitant]
     Active Substance: METFORMIN HYDROCHLORIDE
     Indication: TYPE 2 DIABETES MELLITUS
     Dosage: ER PM AND AM DAILY
  12. VITAMIN B6 [Concomitant]
     Active Substance: PYRIDOXINE HYDROCHLORIDE
     Indication: CARDIAC DISORDER
     Dosage: PM AND AM DAILY
  13. SOLGAR GENTLE IRON [Concomitant]
     Indication: BLOOD IRON DECREASED
     Dosage: WITH DINNER DAILY
  14. PAXIL [Concomitant]
     Active Substance: PAROXETINE HYDROCHLORIDE
     Indication: ANXIETY
  15. TURMERIC FORCE [Concomitant]
     Indication: PRODUCT USED FOR UNKNOWN INDICATION
     Dosage: WITH DINNER DAILY
  16. PREDNISONE. [Concomitant]
     Active Substance: PREDNISONE
     Indication: ARTHRITIS
     Dosage: WITH DINNER DAILY
  17. PREDNISONE. [Concomitant]
     Active Substance: PREDNISONE
     Indication: RHEUMATOID ARTHRITIS
  18. HYDROCHLOORTHIAZIDE [Concomitant]
     Active Substance: HYDROCHLOROTHIAZIDE
     Indication: OEDEMA
     Dosage: AM DAILY
  19. LIPITOR [Concomitant]
     Active Substance: ATORVASTATIN CALCIUM
     Indication: BLOOD CHOLESTEROL INCREASED
     Dosage: WITH DINNER DAILY
  20. METOPROLOL SUCCINATE. [Concomitant]
     Active Substance: METOPROLOL SUCCINATE
     Indication: PRODUCT USED FOR UNKNOWN INDICATION
     Dosage: PM DAILY
  21. METHOTREXATE. [Concomitant]
     Active Substance: METHOTREXATE
     Indication: OSTEOARTHRITIS
  22. HYDROCHLOORTHIAZIDE [Concomitant]
     Active Substance: HYDROCHLOROTHIAZIDE
     Indication: HYPERTENSION
  23. VITAMIN B12 [Concomitant]
     Active Substance: CYANOCOBALAMIN
     Indication: CARDIAC DISORDER
     Dosage: CG PM AND AM DAILY
  24. MAGNESIUM [Concomitant]
     Active Substance: MAGNESIUM
     Indication: PRODUCT USED FOR UNKNOWN INDICATION
     Dosage: AM AND PM DAILY

REACTIONS (34)
  - Spinal fusion surgery [Unknown]
  - Pulmonary thrombosis [Recovered/Resolved]
  - Cataract [Unknown]
  - Catheterisation cardiac [Unknown]
  - Clavicle fracture [Unknown]
  - Back pain [Unknown]
  - Spinal pain [Unknown]
  - Sleep apnoea syndrome [Unknown]
  - Rectal haemorrhage [Unknown]
  - Cartilage injury [Unknown]
  - Haemorrhoids [Unknown]
  - Spinal operation [Unknown]
  - Spinal pain [Unknown]
  - Bladder disorder [Unknown]
  - Surgery [Unknown]
  - Periodontal operation [Unknown]
  - Rib fracture [Unknown]
  - Cellulitis [Unknown]
  - Spinal fusion surgery [Unknown]
  - Dermal cyst [Unknown]
  - Lumbar vertebral fracture [Unknown]
  - Foot fracture [Unknown]
  - Hiatus hernia [Unknown]
  - Cardiac ventriculogram [Unknown]
  - Joint injury [Unknown]
  - Spinal operation [Unknown]
  - Spinal operation [Unknown]
  - Laboratory test abnormal [Unknown]
  - Thrombosis [Unknown]
  - Cholecystectomy [Unknown]
  - Hysterectomy [Unknown]
  - Skin graft [Unknown]
  - Skin graft [Unknown]
  - Surgery [Unknown]

NARRATIVE: CASE EVENT DATE: 199911
